FAERS Safety Report 18322265 (Version 1)
Quarter: 2020Q3

REPORT INFORMATION
  Report Type: Spontaneous
  Country: HU (occurrence: HU)
  Receive Date: 20200928
  Receipt Date: 20200928
  Transmission Date: 20201103
  Serious: Yes (Life-Threatening, Hospitalization)
  Sender: FDA-Public Use
  Company Number: NVSC2020HU262823

PATIENT
  Age: 12 Year
  Sex: Male

DRUGS (20)
  1. PHENYTOIN. [Suspect]
     Active Substance: PHENYTOIN
     Indication: LOSS OF CONSCIOUSNESS
  2. HALOPERIDOL. [Suspect]
     Active Substance: HALOPERIDOL
     Indication: EMOTIONAL DISORDER
  3. CLONAZEPAM. [Suspect]
     Active Substance: CLONAZEPAM
     Indication: HYPERKINESIA
  4. CARBAMAZEPINE. [Suspect]
     Active Substance: CARBAMAZEPINE
     Indication: EMOTIONAL DISORDER
  5. DIAZEPAM. [Suspect]
     Active Substance: DIAZEPAM
     Indication: LOSS OF CONSCIOUSNESS
     Dosage: UNK
     Route: 065
  6. DIAZEPAM. [Suspect]
     Active Substance: DIAZEPAM
     Indication: CONFUSIONAL STATE
  7. PHENYTOIN. [Suspect]
     Active Substance: PHENYTOIN
     Indication: CONFUSIONAL STATE
  8. HALOPERIDOL. [Suspect]
     Active Substance: HALOPERIDOL
     Indication: MENTAL DISORDER
     Dosage: UNK
     Route: 042
  9. CLONAZEPAM. [Suspect]
     Active Substance: CLONAZEPAM
     Indication: CONFUSIONAL STATE
     Dosage: UNK
     Route: 065
  10. HALOPERIDOL. [Suspect]
     Active Substance: HALOPERIDOL
     Indication: AGITATION
     Dosage: UNK
     Route: 048
  11. CLONAZEPAM. [Suspect]
     Active Substance: CLONAZEPAM
     Indication: SEIZURE
  12. PHENYTOIN. [Suspect]
     Active Substance: PHENYTOIN
     Indication: HYPERKINESIA
  13. DIAZEPAM. [Suspect]
     Active Substance: DIAZEPAM
     Indication: HYPERKINESIA
  14. CARBAMAZEPINE. [Suspect]
     Active Substance: CARBAMAZEPINE
     Indication: AGITATION
     Dosage: UNK
     Route: 048
  15. DIAZEPAM. [Suspect]
     Active Substance: DIAZEPAM
     Indication: SEIZURE
  16. DIAZEPAM. [Suspect]
     Active Substance: DIAZEPAM
     Indication: HYPERTONIA
  17. PHENYTOIN. [Suspect]
     Active Substance: PHENYTOIN
     Indication: HYPERTONIA
  18. PHENYTOIN. [Suspect]
     Active Substance: PHENYTOIN
     Indication: SEIZURE
     Dosage: UNK
     Route: 065
  19. CLONAZEPAM. [Suspect]
     Active Substance: CLONAZEPAM
     Indication: HYPERTONIA
  20. CLONAZEPAM. [Suspect]
     Active Substance: CLONAZEPAM
     Indication: LOSS OF CONSCIOUSNESS

REACTIONS (4)
  - Product use in unapproved indication [Unknown]
  - Seizure [Unknown]
  - Medication error [Recovered/Resolved]
  - Neuroleptic malignant syndrome [Recovered/Resolved]
